FAERS Safety Report 9014257 (Version 6)
Quarter: 2015Q3

REPORT INFORMATION
  Report Type: Spontaneous
  Country: CA (occurrence: CA)
  Receive Date: 20130115
  Receipt Date: 20150918
  Transmission Date: 20151125
  Serious: Yes (Hospitalization, Other)
  Sender: FDA-Public Use
  Company Number: CA-ROCHE-1178352

PATIENT
  Age: 41 Year
  Sex: Male

DRUGS (6)
  1. ADVAIR HFA [Concomitant]
     Active Substance: FLUTICASONE PROPIONATE\SALMETEROL XINAFOATE
  2. SALBUTAMOL [Concomitant]
     Active Substance: ALBUTEROL
  3. FLOVENT [Concomitant]
     Active Substance: FLUTICASONE PROPIONATE
  4. XOLAIR [Suspect]
     Active Substance: OMALIZUMAB
     Indication: ASTHMA
     Route: 058
     Dates: start: 20120105, end: 2013
  5. SINGULAIR [Concomitant]
     Active Substance: MONTELUKAST SODIUM
  6. COLOFAC [Concomitant]
     Active Substance: MEBEVERINE HYDROCHLORIDE
     Route: 065
     Dates: start: 20130117

REACTIONS (15)
  - Gastrointestinal disorder [Unknown]
  - Muscle spasms [Unknown]
  - Back pain [Unknown]
  - Colitis [Unknown]
  - Lung infection [Recovered/Resolved]
  - Obstructive airways disorder [Unknown]
  - Injury [Unknown]
  - Nasopharyngitis [Recovered/Resolved]
  - Sneezing [Unknown]
  - Rhinorrhoea [Unknown]
  - Weight increased [Not Recovered/Not Resolved]
  - Fatigue [Unknown]
  - Blood pressure diastolic increased [Unknown]
  - Respiratory disorder [Unknown]
  - Nasal congestion [Recovered/Resolved]

NARRATIVE: CASE EVENT DATE: 20120119
